FAERS Safety Report 10154076 (Version 1)
Quarter: 2014Q2

REPORT INFORMATION
  Report Type: Spontaneous
  Country: US (occurrence: None)
  Receive Date: 20140505
  Receipt Date: 20140505
  Transmission Date: 20141212
  Serious: Yes (Hospitalization)
  Sender: FDA-Public Use
  Company Number: None

PATIENT
  Age: 43 Year
  Sex: Male
  Weight: 63 kg

DRUGS (4)
  1. RITUXIMAB [Suspect]
     Indication: PRODUCT USED FOR UNKNOWN INDICATION
     Dosage: 1000MG ONCE IVPB (GIVEN ON DAY 15 PRE TRANSPLANT)
     Dates: start: 20140121
  2. PREDNISONE [Concomitant]
  3. CELLCEPT [Concomitant]
  4. TACROLIMUS [Concomitant]

REACTIONS (2)
  - Flushing [None]
  - Lip swelling [None]
